FAERS Safety Report 6201009-8 (Version None)
Quarter: 2009Q2

REPORT INFORMATION
  Report Type: 
  Country: None (occurrence: None)
  Receive Date: 20090526
  Receipt Date: 20090514
  Transmission Date: 20091009
  Serious: Yes (Hospitalization)
  Sender: FDA-Public Use
  Company Number: FR-RANBAXY-2009RR-23318

PATIENT
  Age: 33 Year
  Sex: Male

DRUGS (3)
  1. LAMIVUDINE [Suspect]
     Indication: HIV TEST POSITIVE
  2. ZIDOVUDINE [Suspect]
     Indication: HIV TEST POSITIVE
  3. LOPINAVIR [Suspect]
     Indication: HIV TEST POSITIVE

REACTIONS (3)
  - HISTIOCYTOSIS [None]
  - HISTOPLASMOSIS [None]
  - IMMUNE RECONSTITUTION SYNDROME [None]
